FAERS Safety Report 17456670 (Version 3)
Quarter: 2020Q1

REPORT INFORMATION
  Report Type: Report from Study
  Country: US (occurrence: US)
  Receive Date: 20200225
  Receipt Date: 20200305
  Transmission Date: 20200409
  Serious: Yes (Hospitalization)
  Sender: FDA-Public Use
  Company Number: US-GLAXOSMITHKLINE-US2020TSO008189

PATIENT
  Sex: Female
  Weight: 60.69 kg

DRUGS (1)
  1. NIRAPARIB [Suspect]
     Active Substance: NIRAPARIB
     Indication: OVARIAN CANCER
     Dosage: 300 MG, QD
     Route: 048

REACTIONS (5)
  - Dyspnoea [Unknown]
  - Tremor [Unknown]
  - Drug ineffective [Unknown]
  - Nervousness [Unknown]
  - Carbohydrate antigen 125 increased [Unknown]
